FAERS Safety Report 4937439-1 (Version None)
Quarter: 2006Q1

REPORT INFORMATION
  Report Type: 
  Country: None (occurrence: None)
  Receive Date: 20060302
  Receipt Date: 20060207
  Transmission Date: 20060701
  Serious: Yes (Hospitalization, Disabling)
  Sender: FDA-Public Use
  Company Number: FR200601001949

PATIENT
  Age: 80 Year
  Sex: Female
  Weight: 57 kg

DRUGS (2)
  1. FORTEO [Suspect]
     Indication: OSTEOPOROSIS
     Dosage: 20 U G, DAILY (1/D), SUBCUTANEOUS
     Route: 058
     Dates: start: 20050414, end: 20060103
  2. FORTEO [Concomitant]

REACTIONS (4)
  - AORTIC ARTERIOSCLEROSIS [None]
  - BALANCE DISORDER [None]
  - CEREBELLAR INFARCTION [None]
  - TRANSIENT ISCHAEMIC ATTACK [None]
